FAERS Safety Report 7142229-8 (Version None)
Quarter: 2010Q4

REPORT INFORMATION
  Report Type: 
  Country: None (occurrence: None)
  Receive Date: 20101112
  Receipt Date: 20100803
  Transmission Date: 20110411
  Serious: No
  Sender: FDA-Public Use
  Company Number: 1000014537

PATIENT
  Age: 55 Year
  Sex: Female
  Weight: 109 kg

DRUGS (13)
  1. SAVELLA [Suspect]
     Indication: FIBROMYALGIA
     Dosage: ORAL
     Route: 048
     Dates: start: 20090629, end: 20090101
  2. SAVELLA [Suspect]
     Indication: FIBROMYALGIA
     Dosage: 200 MG (10 MG, 2 IN 1 D), ORAL, ORAL
     Route: 048
     Dates: start: 20090101, end: 20090101
  3. SAVELLA [Suspect]
     Indication: FIBROMYALGIA
     Dosage: 200 MG (10 MG, 2 IN 1 D), ORAL, ORAL
     Route: 048
     Dates: start: 20090101
  4. METHADONE [Concomitant]
  5. FLEXERIL [Concomitant]
  6. ADDERALL XR 10 [Concomitant]
  7. SEROQUEL XR [Concomitant]
  8. VITAMIN D [Concomitant]
  9. NEXIUM [Concomitant]
  10. ADVAIR [Concomitant]
  11. METOCLOPRAMIDE [Concomitant]
  12. ALBUTEROL [Concomitant]
  13. LEVOXYL [Concomitant]

REACTIONS (1)
  - MUSCLE SPASMS [None]
